FAERS Safety Report 10801015 (Version 2)
Quarter: 2015Q1

REPORT INFORMATION
  Report Type: Spontaneous
  Country: US (occurrence: US)
  Receive Date: 20150216
  Receipt Date: 20150216
  Transmission Date: 20150721
  Serious: No
  Sender: FDA-Public Use
  Company Number: US-ALLERGAN-1420439US

PATIENT
  Age: 88 Year
  Sex: Female

DRUGS (3)
  1. SIMILASAN FOR INFLAMMATION OF THE MOUTH AND THROAT [Concomitant]
     Active Substance: HOMEOPATHICS
     Indication: DRY EYE
     Dosage: UNK
  2. OCUSOFT V.M.S. [Concomitant]
     Indication: DRY EYE
     Dosage: UNK
  3. RESTASIS [Suspect]
     Active Substance: CYCLOSPORINE
     Indication: DRY EYE
     Dosage: 2 GTT, BID
     Route: 047

REACTIONS (2)
  - Vision blurred [Unknown]
  - Drug ineffective [Unknown]
